FAERS Safety Report 9064767 (Version 1)
Quarter: 2013Q1

REPORT INFORMATION
  Report Type: Spontaneous
  Country: NL (occurrence: NL)
  Receive Date: 20130214
  Receipt Date: 20130214
  Transmission Date: 20140127
  Serious: Yes (Disabling, Other)
  Sender: FDA-Public Use
  Company Number: NL-AMGEN-NLDSP2013009151

PATIENT
  Age: 42 Year
  Sex: Male

DRUGS (1)
  1. ENBREL [Suspect]
     Indication: PRODUCT USED FOR UNKNOWN INDICATION
     Dosage: 50 MG, WEEKLY
     Dates: start: 201009, end: 201211

REACTIONS (2)
  - Malignant melanoma [Recovering/Resolving]
  - Basal cell carcinoma [Recovering/Resolving]
